FAERS Safety Report 6301424-8 (Version None)
Quarter: 2009Q3

REPORT INFORMATION
  Report Type: 
  Country: None (occurrence: None)
  Receive Date: 20090807
  Receipt Date: 20090731
  Transmission Date: 20100115
  Serious: Yes (Hospitalization, Other)
  Sender: FDA-Public Use
  Company Number: US-PURDUE-USA-2009-0038490

PATIENT
  Sex: Male
  Weight: 105.67 kg

DRUGS (2)
  1. OXYCONTIN [Suspect]
     Indication: PROCEDURAL PAIN
     Dosage: 20 MG, BID
     Dates: start: 20090507, end: 20090511
  2. PERCOCET [Concomitant]
     Indication: PROCEDURAL PAIN
     Dosage: 1 TABLET, Q4- 6H

REACTIONS (3)
  - ASPIRATION [None]
  - OVERDOSE [None]
  - RESPIRATORY FAILURE [None]
